FAERS Safety Report 9671082 (Version 1)
Quarter: 2013Q4

REPORT INFORMATION
  Report Type: Spontaneous
  Country: US (occurrence: US)
  Receive Date: 20131106
  Receipt Date: 20131106
  Transmission Date: 20140711
  Serious: No
  Sender: FDA-Public Use
  Company Number: US-PFIZER INC-2013313144

PATIENT
  Age: 69 Year
  Sex: Female
  Weight: 66.21 kg

DRUGS (3)
  1. TIKOSYN [Suspect]
     Indication: ATRIAL FIBRILLATION
     Dosage: 0.5 MG, 2X/DAY
     Route: 048
     Dates: start: 201308
  2. TOPROL XL [Concomitant]
     Indication: HYPERTENSION
     Dosage: 50 MG, UNK
  3. NORVASC [Concomitant]
     Indication: HYPERTENSION
     Dosage: 5 MG, UNK

REACTIONS (2)
  - Abdominal discomfort [Unknown]
  - Diarrhoea [Unknown]
